FAERS Safety Report 11721035 (Version 2)
Quarter: 2016Q1

REPORT INFORMATION
  Report Type: Spontaneous
  Country: US (occurrence: US)
  Receive Date: 20151110
  Receipt Date: 20160209
  Transmission Date: 20160525
  Serious: No
  Sender: FDA-Public Use
  Company Number: US-SA-2015SA166836

PATIENT
  Sex: Female

DRUGS (3)
  1. PRALUENT [Suspect]
     Active Substance: ALIROCUMAB
     Indication: LOW DENSITY LIPOPROTEIN
     Route: 058
     Dates: start: 20150930
  2. ALIROCUMAB PREFILLED PEN [Concomitant]
     Active Substance: ALIROCUMAB
     Indication: LOW DENSITY LIPOPROTEIN
  3. PRALUENT [Suspect]
     Active Substance: ALIROCUMAB
     Indication: LOW DENSITY LIPOPROTEIN
     Route: 058
     Dates: start: 20150916, end: 20150916

REACTIONS (7)
  - Depression [Unknown]
  - Mood swings [Unknown]
  - Upper respiratory tract congestion [Unknown]
  - Blood triglycerides increased [Not Recovered/Not Resolved]
  - Muscle spasms [Unknown]
  - Myalgia [Unknown]
  - Anger [Unknown]

NARRATIVE: CASE EVENT DATE: 2015
